FAERS Safety Report 8471606-8 (Version None)
Quarter: 2012Q2

REPORT INFORMATION
  Report Type: 
  Country: None (occurrence: None)
  Receive Date: 20120627
  Receipt Date: 20120621
  Transmission Date: 20120825
  Serious: Yes (Other)
  Sender: FDA-Public Use
  Company Number: FR-ROCHE-1040238

PATIENT
  Sex: Male

DRUGS (5)
  1. PEGASYS [Suspect]
     Indication: HEPATITIS C
     Route: 058
     Dates: start: 20111124, end: 20120502
  2. COPEGUS [Suspect]
     Indication: HEPATITIS C
     Route: 048
     Dates: start: 20111124, end: 20120502
  3. ISENTRESS [Concomitant]
     Dates: start: 20101025
  4. TRUVADA [Concomitant]
     Dates: start: 20101025
  5. INCIVO [Suspect]
     Indication: HEPATITIS C
     Route: 048
     Dates: start: 20111124, end: 20120223

REACTIONS (2)
  - PROCTALGIA [None]
  - SKIN LESION [None]
